FAERS Safety Report 8262967 (Version 4)
Quarter: 2013Q1

REPORT INFORMATION
  Report Type: Spontaneous
  Country: US (occurrence: US)
  Receive Date: 20111125
  Receipt Date: 20130308
  Transmission Date: 20140127
  Serious: Yes (Other)
  Sender: FDA-Public Use
  Company Number: US-ROCHE-1015955

PATIENT
  Sex: Male
  Weight: 81.72 kg

DRUGS (5)
  1. ACCUTANE [Suspect]
     Indication: ACNE
     Route: 065
     Dates: start: 1998
  2. ACCUTANE [Suspect]
     Route: 048
     Dates: start: 19990605, end: 19991202
  3. ACCUTANE [Suspect]
     Route: 065
     Dates: start: 20010504, end: 20011020
  4. ACCUTANE [Suspect]
     Route: 048
     Dates: start: 19990423
  5. TYLENOL [Concomitant]

REACTIONS (6)
  - Crohn^s disease [Unknown]
  - Inflammatory bowel disease [Unknown]
  - Depression [Not Recovered/Not Resolved]
  - Injury [Unknown]
  - Intestinal haemorrhage [Unknown]
  - Irritable bowel syndrome [Unknown]
